FAERS Safety Report 5285677-3 (Version None)
Quarter: 2007Q1

REPORT INFORMATION
  Report Type: 
  Country: None (occurrence: None)
  Receive Date: 20070126
  Receipt Date: 20061023
  Transmission Date: 20070707
  Serious: Yes (Other)
  Sender: FDA-Public Use
  Company Number: CLOF-10350

PATIENT
  Age: 39 Year
  Sex: Female
  Weight: 58.9676 kg

DRUGS (6)
  1. CLOFARABINE [Suspect]
     Indication: ACUTE MYELOID LEUKAEMIA
     Dosage: 40 MG/M2 QD IV
     Route: 042
     Dates: start: 20061019, end: 20061021
  2. ACYCLOVIR [Concomitant]
  3. MEROPENEM [Concomitant]
  4. TOBRAMYCIN [Concomitant]
  5. PROTONIX [Concomitant]
  6. POSACONAZOLE [Concomitant]

REACTIONS (1)
  - PALMAR-PLANTAR ERYTHRODYSAESTHESIA SYNDROME [None]
